FAERS Safety Report 9786009 (Version 4)
Quarter: 2014Q2

REPORT INFORMATION
  Report Type: Report from Study
  Country: JP (occurrence: JP)
  Receive Date: 20131227
  Receipt Date: 20140417
  Transmission Date: 20141212
  Serious: Yes (Hospitalization, Disabling, Other)
  Sender: FDA-Public Use
  Company Number: JP-PFIZER INC-2013193106

PATIENT
  Age: 73 Year
  Sex: Male
  Weight: 68 kg

DRUGS (18)
  1. IRINOTECAN HCL [Suspect]
     Indication: COLORECTAL CANCER METASTATIC
     Dosage: 322.2 MG (180 MG/M2), ON DAY 1 EVERY 14 DAYS
     Route: 042
     Dates: start: 20120405
  2. IRINOTECAN HCL [Suspect]
     Dosage: 268.5 MG (150 MG/M2), ON DAY 1 EVERY 14 DAYS
     Route: 042
     Dates: start: 20120507, end: 20130521
  3. FLUOROURACIL [Suspect]
     Indication: COLORECTAL CANCER METASTATIC
     Dosage: 716.0 MG (400 MG/M2) BOLUS ON DAY 1 EVERY 14 DAYS
     Route: 040
     Dates: start: 20120405
  4. FLUOROURACIL [Suspect]
     Dosage: 4296.0 MG (2400 MG/M2) EVERY 14 DAYS
     Route: 042
     Dates: start: 20120405
  5. FLUOROURACIL [Suspect]
     Dosage: 358.0 MG (200 MG/M2) BOLUS ON DAY 1 EVERY 14 DAYS
     Route: 040
     Dates: start: 20120507, end: 20130521
  6. FLUOROURACIL [Suspect]
     Dosage: 3580.0 MG (2000 MG/M2) EVERY 14 DAYS
     Route: 042
     Dates: start: 20120507, end: 20130521
  7. FOLINIC ACID [Suspect]
     Indication: COLORECTAL CANCER METASTATIC
     Dosage: 716.0 MG (400 MG/M2), ON DAY 1 EVERY 14 DAYS
     Route: 042
     Dates: start: 20120405
  8. FOLINIC ACID [Suspect]
     Dosage: 716.0 MG (400 MG/M2), ON DAY 1 EVERY 14 DAYS
     Route: 042
     Dates: start: 20120507, end: 20130521
  9. BLINDED THERAPY [Suspect]
     Indication: COLORECTAL CANCER METASTATIC
     Dosage: 568.0 MG (8 MG/KG), ON DAY 1 EVERY 14 DAYS
     Route: 042
     Dates: start: 20120405
  10. BLINDED THERAPY [Suspect]
     Dosage: 568.0 MG (8 MG/KG), ON DAY 1 EVERY 14 DAYS
     Route: 042
     Dates: start: 20120507, end: 20130521
  11. BLOPRESS [Concomitant]
     Dosage: UNK
     Dates: start: 20110211
  12. AMLODIN [Concomitant]
     Dosage: UNK
     Dates: start: 20110225
  13. LANSOPRAZOLE [Concomitant]
     Dosage: UNK
     Dates: start: 20110329
  14. AZUNOL [Concomitant]
     Dosage: UNK
     Dates: start: 20111227
  15. DECADRON [Concomitant]
     Dosage: UNK
     Dates: start: 20120406, end: 20130523
  16. ZEFNART [Concomitant]
     Dosage: UNK
     Dates: start: 20130521
  17. RINDERON [Concomitant]
     Dosage: UNK
     Dates: start: 20130521
  18. ATROPINE [Concomitant]
     Indication: CHOLINERGIC SYNDROME
     Dosage: UNK
     Dates: start: 20120405, end: 20130521

REACTIONS (1)
  - Posterior reversible encephalopathy syndrome [Recovering/Resolving]
